FAERS Safety Report 11813201 (Version 4)
Quarter: 2018Q1

REPORT INFORMATION
  Report Type: Report from Study
  Country: DE (occurrence: DE)
  Receive Date: 20151209
  Receipt Date: 20180320
  Transmission Date: 20180508
  Serious: Yes (Life-Threatening, Hospitalization, Other)
  Sender: FDA-Public Use
  Company Number: DE-ROCHE-1674618

PATIENT
  Sex: Male

DRUGS (6)
  1. TOCILIZUMAB. [Suspect]
     Active Substance: TOCILIZUMAB
     Indication: RHEUMATOID ARTHRITIS
     Dosage: LAST DOSE OF TOCILIZUMAB PRIOR TO THE EVENT: 16/JUN/2015
     Route: 065
     Dates: start: 201312, end: 20150616
  2. PREDNISOLON [Concomitant]
     Active Substance: PREDNISOLONE
  3. LACTULOSE. [Concomitant]
     Active Substance: LACTULOSE
  4. INNOHEP [Concomitant]
     Active Substance: TINZAPARIN SODIUM
  5. PANTOPRAZOL [Concomitant]
     Active Substance: PANTOPRAZOLE SODIUM
  6. NOVALGIN (METAMIZOLE SODIUM) [Concomitant]
     Active Substance: METAMIZOLE SODIUM

REACTIONS (8)
  - Pneumonia [Unknown]
  - Ileus [Recovered/Resolved]
  - Pulmonary embolism [Recovered/Resolved]
  - Pleural effusion [Recovered/Resolved]
  - Metastases to liver [Unknown]
  - Impaired healing [Recovered/Resolved]
  - Ductal adenocarcinoma of pancreas [Recovered/Resolved]
  - Pneumothorax [Recovered/Resolved]

NARRATIVE: CASE EVENT DATE: 201507
